FAERS Safety Report 17150828 (Version 2)
Quarter: 2020Q2

REPORT INFORMATION
  Report Type: Spontaneous
  Country: US (occurrence: US)
  Receive Date: 20191213
  Receipt Date: 20200414
  Transmission Date: 20200713
  Serious: Yes (Other)
  Sender: FDA-Public Use
  Company Number: US-SA-2019SA343050

PATIENT
  Age: 67 Year
  Sex: Female
  Weight: 68 kg

DRUGS (2)
  1. TAXOTERE [Suspect]
     Active Substance: DOCETAXEL
     Indication: BREAST CANCER FEMALE
     Dosage: UNK, QCY
     Route: 042
     Dates: start: 20110422, end: 20110422
  2. TAXOTERE [Suspect]
     Active Substance: DOCETAXEL
     Dosage: UNK, QCY
     Route: 042
     Dates: start: 20110817, end: 20110817

REACTIONS (6)
  - Emotional distress [Unknown]
  - Pain [Unknown]
  - Anxiety [Unknown]
  - Alopecia [Recovering/Resolving]
  - Psychological trauma [Unknown]
  - Impaired quality of life [Unknown]

NARRATIVE: CASE EVENT DATE: 201202
